FAERS Safety Report 6445320-4 (Version None)
Quarter: 2009Q4

REPORT INFORMATION
  Report Type: 
  Country: None (occurrence: None)
  Receive Date: 20091118
  Receipt Date: 20091117
  Transmission Date: 20100525
  Serious: Yes (Death)
  Sender: FDA-Public Use
  Company Number: US-B.I. PHARMACEUTICALS,INC./RIDGEFIELD-2009-BP-12480BP

PATIENT
  Sex: Female

DRUGS (6)
  1. SPIRIVA [Suspect]
     Indication: CHRONIC OBSTRUCTIVE PULMONARY DISEASE
     Dosage: 18 MCG
     Route: 055
     Dates: start: 20061117, end: 20090501
  2. DEXAMETHASONE [Concomitant]
     Dosage: 4 MG
  3. DUONEB [Concomitant]
  4. ZOLPIDEM [Concomitant]
     Dosage: 5 MG
  5. DOCUSATE [Concomitant]
  6. PRO-AIR [Concomitant]

REACTIONS (5)
  - DEATH [None]
  - FALL [None]
  - HIP FRACTURE [None]
  - LUNG NEOPLASM MALIGNANT [None]
  - METASTASES TO CENTRAL NERVOUS SYSTEM [None]
